FAERS Safety Report 6310832-0 (Version None)
Quarter: 2009Q3

REPORT INFORMATION
  Report Type: 
  Country: None (occurrence: None)
  Receive Date: 20090812
  Receipt Date: 20090724
  Transmission Date: 20100115
  Serious: Yes (Other)
  Sender: FDA-Public Use
  Company Number: 2009US-25866

PATIENT
  Sex: Male

DRUGS (1)
  1. ISOTRETINOIN [Suspect]
     Indication: DRUG USE FOR UNKNOWN INDICATION
     Dosage: 20 MG, BID, ORAL
     Route: 048
     Dates: start: 20090501

REACTIONS (2)
  - PATERNAL DRUGS AFFECTING FOETUS [None]
  - PREGNANCY OF PARTNER [None]
